FAERS Safety Report 7944059-3 (Version None)
Quarter: 2011Q4

REPORT INFORMATION
  Report Type: 
  Country: None (occurrence: None)
  Receive Date: 20111128
  Receipt Date: 20111114
  Transmission Date: 20120403
  Serious: Yes (Other)
  Sender: FDA-Public Use
  Company Number: JP-ASTRAZENECA-2011SE70754

PATIENT
  Sex: Female

DRUGS (1)
  1. MEROPENEM [Suspect]
     Indication: LUNG INFECTION
     Route: 042

REACTIONS (1)
  - BLOOD POTASSIUM INCREASED [None]
